FAERS Safety Report 8599173-9 (Version None)
Quarter: 2012Q3

REPORT INFORMATION
  Report Type: 
  Country: None (occurrence: None)
  Receive Date: 20120808
  Receipt Date: 20120808
  Transmission Date: 20120928
  Serious: Yes (Life-Threatening, Hospitalization)
  Sender: FDA-Public Use
  Company Number: None

PATIENT
  Age: 55 Year
  Sex: Female
  Weight: 99.7913 kg

DRUGS (2)
  1. CRESTOR [Suspect]
     Indication: BLOOD CHOLESTEROL INCREASED
     Dosage: 40 MG QAM PO
     Route: 048
     Dates: start: 20120123, end: 20120405
  2. GEMFIBROZIL [Suspect]
     Indication: BLOOD CHOLESTEROL INCREASED
     Dosage: 600MG BID PO
     Route: 048

REACTIONS (3)
  - RENAL FAILURE [None]
  - BLOOD PRESSURE DECREASED [None]
  - RHABDOMYOLYSIS [None]
